FAERS Safety Report 23965333 (Version 2)
Quarter: 2024Q3

REPORT INFORMATION
  Report Type: Spontaneous
  Country: US (occurrence: US)
  Receive Date: 20240612
  Receipt Date: 20240917
  Transmission Date: 20241017
  Serious: No
  Sender: COOPERSURGICAL
  Company Number: US-COOPERSURGICAL, INC.-2024CPS001622

PATIENT
  Age: 37 Year
  Sex: Female
  Weight: 54.966 kg

DRUGS (1)
  1. PARAGARD T 380A [Suspect]
     Active Substance: COPPER
     Indication: Contraception
     Dosage: UNK
     Route: 015
     Dates: start: 20240419, end: 20240509

REACTIONS (4)
  - Device issue [Recovered/Resolved]
  - Procedural pain [Recovered/Resolved]
  - Pelvic pain [Unknown]
  - Device dislocation [Recovered/Resolved]

NARRATIVE: CASE EVENT DATE: 20240419
